FAERS Safety Report 6520994-8 (Version None)
Quarter: 2009Q4

REPORT INFORMATION
  Report Type: 
  Country: None (occurrence: None)
  Receive Date: 20091229
  Receipt Date: 20091224
  Transmission Date: 20100525
  Serious: Yes (Life-Threatening, Hospitalization, Other)
  Sender: FDA-Public Use
  Company Number: GB-B.I. PHARMACEUTICALS,INC./RIDGEFIELD-2009-UK-01128UK

PATIENT
  Age: 73 Year
  Sex: Female
  Weight: 150 kg

DRUGS (12)
  1. MOBIC [Suspect]
  2. METFORMIN [Suspect]
  3. CEFACLOR [Concomitant]
  4. CO-FLUAMPICIL [Concomitant]
  5. ERYTHROMYCIN [Concomitant]
  6. GABAPENTIN [Concomitant]
  7. HUMALOG [Concomitant]
  8. HUMALOG [Concomitant]
  9. LOPERAMIDE [Concomitant]
  10. OMEPRAZOLE [Concomitant]
  11. OXYBUTYNIN CHLORIDE [Concomitant]
  12. WARFARIN SODIUM [Concomitant]

REACTIONS (1)
  - HYPERKALAEMIA [None]
